FAERS Safety Report 6532561-0 (Version None)
Quarter: 2010Q1

REPORT INFORMATION
  Report Type: 
  Country: None (occurrence: None)
  Receive Date: 20100104
  Receipt Date: 20091208
  Transmission Date: 20100710
  Serious: Yes (Hospitalization, Other)
  Sender: FDA-Public Use
  Company Number: 20091208CINRY1298

PATIENT
  Age: 29 Year
  Sex: Male

DRUGS (8)
  1. CINRYZE [Suspect]
     Indication: HEREDITARY ANGIOEDEMA
     Dosage: (500 UNIT,MONDAY AND WEDNESDAY),INTRAVENOUS; (1000 UNIT, FRIDAYS),INTRAVENOUS
     Route: 042
     Dates: start: 20090301
  2. CINRYZE [Suspect]
     Indication: PROPHYLAXIS
     Dosage: (500 UNIT,MONDAY AND WEDNESDAY),INTRAVENOUS; (1000 UNIT, FRIDAYS),INTRAVENOUS
     Route: 042
     Dates: start: 20090301
  3. CINRYZE [Suspect]
     Indication: HEREDITARY ANGIOEDEMA
     Dosage: (500 UNIT,MONDAY AND WEDNESDAY),INTRAVENOUS; (1000 UNIT, FRIDAYS),INTRAVENOUS
     Route: 042
     Dates: start: 20090301
  4. CINRYZE [Suspect]
     Indication: PROPHYLAXIS
     Dosage: (500 UNIT,MONDAY AND WEDNESDAY),INTRAVENOUS; (1000 UNIT, FRIDAYS),INTRAVENOUS
     Route: 042
     Dates: start: 20090301
  5. DX-88 (ECALLANTIDE) (INVESTIGATIONAL DRUG) [Suspect]
     Indication: HEREDITARY ANGIOEDEMA
     Dosage: 2  DOSES 4 HOURS APART (AS REQUIRED)
     Dates: start: 20080401
  6. DANAZOL [Concomitant]
  7. NASONEX [Concomitant]
  8. ASTELIN (DIPROPHYLLINE) [Concomitant]

REACTIONS (3)
  - ABDOMINAL PAIN [None]
  - ANGIOEDEMA [None]
  - LEUKAEMIA [None]
